FAERS Safety Report 14377788 (Version 1)
Quarter: 2018Q1

REPORT INFORMATION
  Report Type: Spontaneous
  Country: US (occurrence: US)
  Receive Date: 20180111
  Receipt Date: 20180111
  Transmission Date: 20180509
  Serious: No
  Sender: FDA-Public Use
  Company Number: US-PFIZER INC-2018009193

PATIENT
  Age: 8 Year
  Sex: Male
  Weight: 26.31 kg

DRUGS (2)
  1. QUILLIVANT XR [Suspect]
     Active Substance: METHYLPHENIDATE HYDROCHLORIDE
     Indication: ATTENTION DEFICIT/HYPERACTIVITY DISORDER
     Dosage: 5 ML, DAILY [5ML, 1 TEASPOON A DAY FOR 5 DAYS]
     Route: 048
     Dates: start: 2016
  2. QUILLIVANT XR [Suspect]
     Active Substance: METHYLPHENIDATE HYDROCHLORIDE
     Indication: DYSLEXIA
     Dosage: 7.5 ML, DAILY (1.5 TEASPOONS)
     Route: 048

REACTIONS (7)
  - Depressed mood [Recovering/Resolving]
  - Feeling abnormal [Unknown]
  - Emotional poverty [Unknown]
  - Mood altered [Recovering/Resolving]
  - Poor quality drug administered [Unknown]
  - Decreased appetite [Unknown]
  - Irritability [Recovering/Resolving]

NARRATIVE: CASE EVENT DATE: 201706
